FAERS Safety Report 9093584 (Version 1)
Quarter: 2013Q1

REPORT INFORMATION
  Report Type: Spontaneous
  Country: FR (occurrence: FR)
  Receive Date: 20130131
  Receipt Date: 20130131
  Transmission Date: 20140127
  Serious: Yes (Other)
  Sender: FDA-Public Use
  Company Number: FR-ASTELLAS-2013US001078

PATIENT
  Age: 53 Year
  Sex: Male

DRUGS (1)
  1. AMBISOME [Suspect]
     Indication: STREPTOCOCCAL INFECTION
     Dosage: 10 MG/KG, UNKNOWN/D
     Route: 065

REACTIONS (3)
  - Intentional drug misuse [Unknown]
  - Renal impairment [Unknown]
  - Blood creatinine abnormal [Unknown]
